FAERS Safety Report 10438710 (Version 1)
Quarter: 2014Q3

REPORT INFORMATION
  Report Type: Spontaneous
  Country: US (occurrence: US)
  Receive Date: 20140908
  Receipt Date: 20140908
  Transmission Date: 20150326
  Serious: No
  Sender: FDA-Public Use
  Company Number: US-BRISTOL-MYERS SQUIBB COMPANY-19876507

PATIENT
  Age: 52 Year
  Sex: Female

DRUGS (4)
  1. ANTABUSE [Concomitant]
     Active Substance: DISULFIRAM
  2. TRAZODONE HYDROCHLORIDE. [Concomitant]
     Active Substance: TRAZODONE HYDROCHLORIDE
  3. CYMBALTA [Concomitant]
     Active Substance: DULOXETINE HYDROCHLORIDE
  4. ABILIFY [Suspect]
     Active Substance: ARIPIPRAZOLE
     Dates: end: 20131129

REACTIONS (10)
  - Decreased appetite [Recovering/Resolving]
  - Weight decreased [Recovering/Resolving]
  - Dyskinesia [Unknown]
  - Conjunctivitis [Recovered/Resolved]
  - Hypoaesthesia [Unknown]
  - Insomnia [Recovered/Resolved]
  - Herpes zoster [Unknown]
  - Night sweats [Recovering/Resolving]
  - Paraesthesia [Unknown]
  - Hallucination [Recovered/Resolved]

NARRATIVE: CASE EVENT DATE: 201311
